FAERS Safety Report 6596555-1 (Version None)
Quarter: 2010Q1

REPORT INFORMATION
  Report Type: 
  Country: None (occurrence: None)
  Receive Date: 20100223
  Receipt Date: 20100215
  Transmission Date: 20100710
  Serious: Yes (Other)
  Sender: FDA-Public Use
  Company Number: US-SANOFI-AVENTIS-2010SA009155

PATIENT
  Age: 70 Year
  Sex: Female

DRUGS (3)
  1. LANTUS [Suspect]
     Dosage: 30 UNITS IN AM AND 23 UNITS IN PM
     Route: 058
  2. OPTICLICK [Suspect]
  3. ALL OTHER THERAPEUTIC PRODUCTS [Concomitant]

REACTIONS (4)
  - BRADYPHRENIA [None]
  - CARDIAC DISORDER [None]
  - CEREBROVASCULAR ACCIDENT [None]
  - SPEECH DISORDER [None]
